FAERS Safety Report 4268121-4 (Version None)
Quarter: 2004Q1

REPORT INFORMATION
  Report Type: 
  Country: None (occurrence: None)
  Receive Date: 20040109
  Receipt Date: 20040105
  Transmission Date: 20041129
  Serious: Yes (Hospitalization)
  Sender: FDA-Public Use
  Company Number: FR-ROCHE-355135

PATIENT
  Age: 39 Year
  Sex: Male
  Weight: 65 kg

DRUGS (2)
  1. RIVOTRIL [Suspect]
     Indication: DRUG USE FOR UNKNOWN INDICATION
     Route: 048
     Dates: start: 20021015, end: 20030923
  2. LEPONEX [Concomitant]

REACTIONS (2)
  - DERMATITIS EXFOLIATIVE [None]
  - PRURITUS [None]
